FAERS Safety Report 18999927 (Version 1)
Quarter: 2021Q1

REPORT INFORMATION
  Report Type: Spontaneous
  Country: TH (occurrence: TH)
  Receive Date: 20210312
  Receipt Date: 20210312
  Transmission Date: 20210420
  Serious: Yes (Hospitalization, Other)
  Sender: FDA-Public Use
  Company Number: TH-MICRO LABS LIMITED-ML2021-00721

PATIENT
  Age: 47 Year
  Sex: Male

DRUGS (7)
  1. METFORMIN [Concomitant]
     Active Substance: METFORMIN HYDROCHLORIDE
     Dosage: 2550 MG DAILY
  2. AMLODIPINE [Suspect]
     Active Substance: AMLODIPINE BESYLATE
     Dosage: 5 MG ONCE DAILY
  3. GLIPIZIDE. [Concomitant]
     Active Substance: GLIPIZIDE
     Dosage: 10 MG PER DAY
  4. SIMVASTATIN. [Suspect]
     Active Substance: SIMVASTATIN
     Dosage: 40 MG/DAY, OCCASIONALLY TOOK 40MG TWICE DAILY DUE TO FORGET CORRECT DOSE LAST MONTH
  5. TURMERIC [Suspect]
     Active Substance: HERBALS\TURMERIC
     Dosage: ONE TEASPOONFUL TWICE A DAY FOR 3 DAYS
  6. LOSARTAN. [Concomitant]
     Active Substance: LOSARTAN
     Dosage: 100 MG PER DAY
  7. SIMVASTATIN. [Suspect]
     Active Substance: SIMVASTATIN

REACTIONS (3)
  - Drug interaction [Unknown]
  - Rhabdomyolysis [Recovering/Resolving]
  - Hepatitis [Recovering/Resolving]
